FAERS Safety Report 25587835 (Version 5)
Quarter: 2025Q3

REPORT INFORMATION
  Report Type: Report from Study
  Country: EU (occurrence: EU)
  Receive Date: 20250721
  Receipt Date: 20250916
  Transmission Date: 20251021
  Serious: Yes (Death, Life-Threatening, Hospitalization, Other)
  Sender: TAKEDA
  Company Number: EU-TAKEDA-2025TUS065075

PATIENT
  Age: 7 Year
  Sex: Female
  Weight: 26 kg

DRUGS (6)
  1. APADAMTASE ALFA [Suspect]
     Active Substance: APADAMTASE ALFA
     Indication: Congenital thrombotic thrombocytopenic purpura
     Dosage: 1000 INTERNATIONAL UNIT, Q2WEEKS
     Dates: start: 20240926, end: 20250720
  2. APADAMTASE ALFA [Suspect]
     Active Substance: APADAMTASE ALFA
     Dosage: 40 KILOGRAM, Q2WEEKS
     Dates: start: 20240926
  3. APADAMTASE ALFA [Suspect]
     Active Substance: APADAMTASE ALFA
     Dosage: 1000 INTERNATIONAL UNIT, QD
     Dates: start: 20250714, end: 20250720
  4. RITUXIMAB [Concomitant]
     Active Substance: RITUXIMAB
  5. ONDANSETRON [Concomitant]
     Active Substance: ONDANSETRON
  6. FRESH FROZEN PLASMA [Concomitant]
     Active Substance: HUMAN PLASMA
     Dosage: 2 GRAM, MONTHLY
     Dates: start: 2024

REACTIONS (3)
  - Congenital thrombotic thrombocytopenic purpura [Fatal]
  - Inhibiting antibodies positive [Unknown]
  - Drug ineffective [Unknown]

NARRATIVE: CASE EVENT DATE: 20250712
